FAERS Safety Report 20722811 (Version 1)
Quarter: 2022Q2

REPORT INFORMATION
  Report Type: Spontaneous
  Country: US (occurrence: US)
  Receive Date: 20220419
  Receipt Date: 20220419
  Transmission Date: 20220721
  Serious: Yes (Other)
  Sender: FDA-Public Use
  Company Number: US-JNJFOC-20220424619

PATIENT
  Age: 65 Year
  Sex: Male

DRUGS (1)
  1. DARZALEX [Suspect]
     Active Substance: DARATUMUMAB
     Indication: Plasma cell myeloma
     Route: 042
     Dates: start: 202108

REACTIONS (5)
  - Neuropathy peripheral [Unknown]
  - Thrombosis [Unknown]
  - Dyspnoea [Unknown]
  - White blood cell count decreased [Unknown]
  - Fatigue [Unknown]
